FAERS Safety Report 8382093-2 (Version None)
Quarter: 2012Q2

REPORT INFORMATION
  Report Type: 
  Country: None (occurrence: None)
  Receive Date: 20120524
  Receipt Date: 20120509
  Transmission Date: 20120825
  Serious: Yes (Hospitalization)
  Sender: FDA-Public Use
  Company Number: US-JNJFOC-20120509810

PATIENT
  Age: 76 Year
  Sex: Female

DRUGS (6)
  1. METOPROLOL [Concomitant]
     Route: 065
  2. STELARA [Suspect]
     Indication: PRODUCT USED FOR UNKNOWN INDICATION
     Route: 058
     Dates: start: 20120427
  3. ARICEPT [Concomitant]
     Route: 065
  4. SYNTHROID [Concomitant]
     Route: 065
  5. TRIAMTERENE [Concomitant]
     Route: 065
  6. BENAZEPRIL HYDROCHLORIDE [Concomitant]
     Route: 065

REACTIONS (1)
  - IMMOBILE [None]
